FAERS Safety Report 24388577 (Version 1)
Quarter: 2024Q4

REPORT INFORMATION
  Report Type: Spontaneous
  Country: DE (occurrence: DE)
  Receive Date: 20241002
  Receipt Date: 20241002
  Transmission Date: 20250114
  Serious: Yes (Hospitalization, Other)
  Sender: ALEXION PHARMACEUTICALS
  Company Number: DE-ASTRAZENECA-202409GLO005195DE

PATIENT
  Age: 66 Year
  Weight: 97 kg

DRUGS (22)
  1. ULTOMIRIS [Suspect]
     Active Substance: RAVULIZUMAB-CWVZ
     Dosage: UNK
     Route: 065
  2. CROVALIMAB [Suspect]
     Active Substance: CROVALIMAB
     Dosage: 1000 MILLIGRAM, SINGLE
  3. CROVALIMAB [Suspect]
     Active Substance: CROVALIMAB
     Dosage: 340 MILLIGRAM, QW
  4. AMLODIPINE [Concomitant]
     Active Substance: AMLODIPINE BESYLATE
     Dosage: 10 GRAM, QD
  5. CHOLECALCIFEROL [Concomitant]
     Active Substance: CHOLECALCIFEROL
     Indication: Vitamin D deficiency
     Dosage: 4000 INTERNATIONAL UNIT, QW
  6. HYDROCHLOROTHIAZIDE [Concomitant]
     Active Substance: HYDROCHLOROTHIAZIDE
     Indication: Hypertension
     Route: 065
  7. URAPIDIL [Concomitant]
     Active Substance: URAPIDIL
     Dosage: 60 MILLIGRAM, QD
  8. BLEMAREN N [Concomitant]
     Dosage: 0.33 UNK, QD
  9. ATORVASTATIN [Concomitant]
     Active Substance: ATORVASTATIN
     Dosage: 20 MILLIGRAM, QD
  10. ATORVASTATIN [Concomitant]
     Active Substance: ATORVASTATIN
     Dosage: 20 MILLIGRAM, QD
  11. ALLOPURINOL [Concomitant]
     Active Substance: ALLOPURINOL
     Indication: Gout
     Dosage: 100 MILLIGRAM, QD
  12. NEBIVOLOL [Concomitant]
     Active Substance: NEBIVOLOL
     Indication: Hypertension
     Dosage: 5 MILLIGRAM, QD
  13. NEBIVOLOL [Concomitant]
     Active Substance: NEBIVOLOL
     Dosage: 2.5 MILLIGRAM, QD
  14. OLMESARTAN MEDOXOMIL [Concomitant]
     Active Substance: OLMESARTAN MEDOXOMIL
     Indication: Hypertension
     Dosage: UNK
     Route: 065
  15. TORSEMIDE [Concomitant]
     Active Substance: TORSEMIDE
     Dosage: 5 MILLIGRAM, QD
  16. TINZAPARIN [Concomitant]
     Active Substance: TINZAPARIN
     Dosage: 4500 INTERNATIONAL UNIT, QD
  17. VENLAFAXINE [Concomitant]
     Active Substance: VENLAFAXINE HYDROCHLORIDE
     Indication: Depression
     Dosage: 75 MILLIGRAM, QD
  18. ASPIRIN [Concomitant]
     Active Substance: ASPIRIN
     Dosage: 100 MILLIGRAM, QD
  19. OPIPRAMOL [Concomitant]
     Active Substance: OPIPRAMOL
     Dosage: 100 MILLIGRAM, QD
  20. Jonosteril [Concomitant]
     Indication: Fluid replacement
     Dosage: 1000 MILLILITER, QD
  21. Jonosteril [Concomitant]
     Dosage: 500 MILLILITER, QD
  22. Jonosteril [Concomitant]
     Dosage: 1000 MILLILITER, EVERY THREE DAYS

REACTIONS (2)
  - COVID-19 [Recovered/Resolved]
  - Type III immune complex mediated reaction [Recovered/Resolved]
